FAERS Safety Report 6695867-0 (Version None)
Quarter: 2010Q2

REPORT INFORMATION
  Report Type: 
  Country: None (occurrence: None)
  Receive Date: 20100426
  Receipt Date: 20090831
  Transmission Date: 20101027
  Serious: No
  Sender: FDA-Public Use
  Company Number: A0802521A

PATIENT
  Age: 48 Year
  Sex: Female
  Weight: 49.1 kg

DRUGS (13)
  1. ZOFRAN [Suspect]
     Indication: DRUG USE FOR UNKNOWN INDICATION
     Dosage: 4MG SEE DOSAGE TEXT
     Route: 030
     Dates: start: 20090801, end: 20090811
  2. K-DUR [Concomitant]
  3. ATENOLOL [Concomitant]
  4. ATIVAN [Concomitant]
  5. CLONAZEPAM [Concomitant]
  6. SYNTHROID [Concomitant]
  7. FLORINEF [Concomitant]
  8. PREDNISONE [Concomitant]
  9. PROTONIX [Concomitant]
  10. AZITHROMYCIN [Concomitant]
  11. VITAMIN D [Concomitant]
  12. MIRALAX [Concomitant]
  13. FLORASTOR [Concomitant]

REACTIONS (4)
  - APPLICATION SITE PARAESTHESIA [None]
  - ORAL PRURITUS [None]
  - PRURITUS [None]
  - RASH [None]
